FAERS Safety Report 18148060 (Version 1)
Quarter: 2020Q3

REPORT INFORMATION
  Report Type: Spontaneous
  Country: FR (occurrence: FR)
  Receive Date: 20200814
  Receipt Date: 20200814
  Transmission Date: 20201103
  Serious: Yes (Hospitalization, Other)
  Sender: FDA-Public Use
  Company Number: FR-ALKEM LABORATORIES LIMITED-FR-ALKEM-2020-02723

PATIENT
  Age: 28 Year
  Sex: Male

DRUGS (3)
  1. PREGABALIN. [Suspect]
     Active Substance: PREGABALIN
     Indication: SEXUAL DYSFUNCTION
     Dosage: 450 MILLIGRAM, QD
     Route: 065
  2. PREGABALIN. [Suspect]
     Active Substance: PREGABALIN
     Indication: DRUG WITHDRAWAL SYNDROME
     Dosage: 1.5?2 GRAM, QD
     Route: 065
  3. PREGABALIN. [Suspect]
     Active Substance: PREGABALIN
     Indication: EUPHORIC MOOD
     Dosage: 300 MILLIGRAM, QD
     Route: 065

REACTIONS (6)
  - Anxiety [Unknown]
  - Withdrawal syndrome [Unknown]
  - Dyspepsia [Unknown]
  - Drug dependence [Unknown]
  - Pain [Unknown]
  - Drug abuse [Unknown]
